FAERS Safety Report 7463239-7 (Version None)
Quarter: 2011Q2

REPORT INFORMATION
  Report Type: 
  Country: None (occurrence: None)
  Receive Date: 20110506
  Receipt Date: 20110426
  Transmission Date: 20111010
  Serious: Yes (Death)
  Sender: FDA-Public Use
  Company Number: US-CELGENEUS-163-21880-11043273

PATIENT
  Sex: Female

DRUGS (9)
  1. GLUCOTROL [Concomitant]
     Route: 065
  2. TOPROL-XL [Concomitant]
     Route: 065
  3. XANAX [Concomitant]
     Route: 065
  4. VELCADE [Concomitant]
     Route: 065
  5. REVLIMID [Suspect]
     Dosage: 10 MILLIGRAM
     Route: 048
     Dates: start: 20110301
  6. PAXIL [Concomitant]
     Route: 065
  7. DEXAMETHASONE [Concomitant]
     Route: 065
  8. NORVASC [Concomitant]
     Route: 065
  9. REVLIMID [Suspect]
     Indication: MULTIPLE MYELOMA
     Dosage: 15 MILLIGRAM
     Route: 048
     Dates: start: 20100205

REACTIONS (1)
  - DEATH [None]
